FAERS Safety Report 5926810-7 (Version None)
Quarter: 2008Q4

REPORT INFORMATION
  Report Type: 
  Country: None (occurrence: None)
  Receive Date: 20081022
  Receipt Date: 20081013
  Transmission Date: 20090506
  Serious: Yes (Hospitalization)
  Sender: FDA-Public Use
  Company Number: US-PURDUE-USA_2008_0035441

PATIENT
  Age: 81 Year
  Sex: Female

DRUGS (2)
  1. SENOKOT [Suspect]
     Indication: CONSTIPATION
     Dosage: 1 TABLET, BID
     Dates: start: 20080915, end: 20081001
  2. SENOKOT [Suspect]
     Dosage: 1 TABLET, SINGLE
     Dates: start: 20081004, end: 20081004

REACTIONS (5)
  - ABDOMINAL PAIN UPPER [None]
  - CONSTIPATION [None]
  - DIARRHOEA [None]
  - DIARRHOEA HAEMORRHAGIC [None]
  - FREQUENT BOWEL MOVEMENTS [None]
